FAERS Safety Report 12610830 (Version 1)
Quarter: 2016Q3

REPORT INFORMATION
  Report Type: Spontaneous
  Country: US (occurrence: US)
  Receive Date: 20160801
  Receipt Date: 20160801
  Transmission Date: 20161109
  Serious: No
  Sender: FDA-Public Use
  Company Number: US-PFIZER INC-2016254443

PATIENT
  Age: 83 Year
  Sex: Female

DRUGS (3)
  1. IBRANCE [Suspect]
     Active Substance: PALBOCICLIB
     Indication: BREAST CANCER METASTATIC
     Dosage: 125 MG, (ONCE PER DAY ON DAYS 1 TO 21 X 21 DAYS, EACH 28DAYS)
     Route: 048
  2. FASLODEX [Concomitant]
     Active Substance: FULVESTRANT
     Dosage: 500 MG, MONTHLY (FIRST CYCLE ON DAYS 1, 15)
     Route: 030
  3. XGEVA [Concomitant]
     Active Substance: DENOSUMAB
     Dosage: 120 MG, (Q 4 WEEKS)
     Route: 058

REACTIONS (1)
  - Blood creatinine increased [Unknown]
